FAERS Safety Report 9047465 (Version 1)
Quarter: 2013Q1

REPORT INFORMATION
  Report Type: Report from Study
  Country: US (occurrence: US)
  Receive Date: 20130201
  Receipt Date: 20130201
  Transmission Date: 20140127
  Serious: No
  Sender: FDA-Public Use
  Company Number: US-ABBOTT-12P-163-1029254-00

PATIENT
  Age: 35 None
  Sex: Female

DRUGS (6)
  1. HUMIRA [Suspect]
     Indication: ANKYLOSING SPONDYLITIS
     Route: 058
     Dates: start: 20121220
  2. NITROFURANTOIN [Concomitant]
     Indication: PROPHYLAXIS
  3. FLONASE [Concomitant]
     Indication: HYPERSENSITIVITY
     Dosage: 2 SPRAYS EACH NOSTRIL
     Route: 045
  4. MONTELUKAST SODIUM [Concomitant]
     Indication: HYPERSENSITIVITY
  5. OMEPRAZOLE [Concomitant]
     Indication: GASTROOESOPHAGEAL REFLUX DISEASE
     Dosage: DAILY
  6. DICYCLOMINE [Concomitant]
     Indication: IRRITABLE BOWEL SYNDROME

REACTIONS (3)
  - Throat irritation [Unknown]
  - Oropharyngeal pain [Unknown]
  - Sinusitis [Not Recovered/Not Resolved]
